FAERS Safety Report 4929926-7 (Version None)
Quarter: 2006Q1

REPORT INFORMATION
  Report Type: 
  Country: None (occurrence: None)
  Receive Date: 20060301
  Receipt Date: 20060220
  Transmission Date: 20060701
  Serious: Yes (Hospitalization)
  Sender: FDA-Public Use
  Company Number: US-AVENTIS-200611703US

PATIENT
  Sex: Male
  Weight: 91 kg

DRUGS (6)
  1. AMARYL [Suspect]
     Indication: DIABETES MELLITUS NON-INSULIN-DEPENDENT
  2. COREG [Concomitant]
     Dosage: DOSE: UNK
     Dates: start: 20050101
  3. LIPITOR [Concomitant]
     Indication: BLOOD CHOLESTEROL
     Dosage: DOSE: UNK
  4. MIRAPEX [Concomitant]
     Dosage: DOSE: UNK
  5. ANALIPRIL [Concomitant]
     Dosage: DOSE: UNK
  6. AVANDIA [Concomitant]
     Dates: end: 20050101

REACTIONS (4)
  - INFECTION [None]
  - MYOCARDIAL INFARCTION [None]
  - PYELONEPHRITIS [None]
  - RENAL DISORDER [None]
